FAERS Safety Report 5216201-9 (Version None)
Quarter: 2007Q1

REPORT INFORMATION
  Report Type: 
  Country: None (occurrence: None)
  Receive Date: 20070118
  Receipt Date: 20070105
  Transmission Date: 20070707
  Serious: Yes (Hospitalization)
  Sender: FDA-Public Use
  Company Number: 07-000052

PATIENT
  Age: 13 Month
  Sex: Female

DRUGS (1)
  1. PYRIDIUM (PHENAZOPYRIDINE HYDROCHLORIDE) TABLET, 100MG [Suspect]
     Dosage: 25 TO 30 TABLETS, ORAL
     Route: 048

REACTIONS (18)
  - ACCIDENTAL DRUG INTAKE BY CHILD [None]
  - ACCIDENTAL POISONING [None]
  - ALANINE AMINOTRANSFERASE INCREASED [None]
  - ALBUMIN URINE PRESENT [None]
  - BACTERIAL INFECTION [None]
  - CHROMATURIA [None]
  - CULTURE URINE POSITIVE [None]
  - CYANOSIS [None]
  - FAECES DISCOLOURED [None]
  - HAEMOLYTIC ANAEMIA [None]
  - HEPATOMEGALY [None]
  - HYPOVENTILATION [None]
  - LETHARGY [None]
  - LIVEDO RETICULARIS [None]
  - OCCULT BLOOD POSITIVE [None]
  - PALLOR [None]
  - RESPIRATORY RATE INCREASED [None]
  - TONGUE DISCOLOURATION [None]
